FAERS Safety Report 15479814 (Version 1)
Quarter: 2018Q4

REPORT INFORMATION
  Report Type: Spontaneous
  Country: SI (occurrence: SI)
  Receive Date: 20181009
  Receipt Date: 20181009
  Transmission Date: 20190205
  Serious: Yes (Hospitalization)
  Sender: FDA-Public Use
  Company Number: SI-PURDUE-GBR-2018-0059857

PATIENT
  Age: 79 Year
  Sex: Female

DRUGS (10)
  1. SANVAL [Concomitant]
     Active Substance: ZOLPIDEM TARTRATE
     Indication: INSOMNIA
     Dosage: 5 MG, DAILY (IN THE EVENING; LONG TERM THERAPY)
     Route: 048
  2. SEVREDOL [Concomitant]
     Active Substance: MORPHINE
     Indication: PAIN
     Dosage: 10 MG, Q4H (AS NECESSARY)
     Route: 048
  3. DORETA [Concomitant]
     Active Substance: ACETAMINOPHEN\TRAMADOL HYDROCHLORIDE
     Indication: PAIN
     Dosage: 1 DF, UNK (37,5MG/325MG FILM COATED TABLET; LONG TERM THERAPY)
     Route: 048
  4. NOLPAZA [Concomitant]
     Active Substance: PANTOPRAZOLE SODIUM
     Indication: DYSPEPSIA
     Dosage: 40 MG, DAILY (IN THE MORNING; LONG TERM THERAPY)
     Route: 048
  5. TARGINACT [Suspect]
     Active Substance: NALOXONE HYDROCHLORIDE\OXYCODONE HYDROCHLORIDE
     Indication: SKIN CANCER
  6. NALGESIN                           /00256201/ [Concomitant]
     Indication: PAIN
     Dosage: 550 MG, QOD (LONG TERM THERAPY)
     Route: 048
  7. NEODOLPASSE [Concomitant]
     Dosage: 75MG/30 MG SOLUTION FOR INFUSION; 125 ML/H
     Route: 042
  8. TARGINACT [Suspect]
     Active Substance: NALOXONE HYDROCHLORIDE\OXYCODONE HYDROCHLORIDE
     Indication: METASTASES TO NERVOUS SYSTEM
     Dosage: 2 DF, DAILY ( STRENGTH 5MG/2,5MG)
     Route: 048
     Dates: start: 20180528, end: 20180601
  9. LYRICA [Concomitant]
     Active Substance: PREGABALIN
     Indication: PAIN
     Dosage: 75 MG, Q12H
     Route: 048
  10. DALERON [Concomitant]
     Active Substance: ACETAMINOPHEN
     Indication: PAIN
     Dosage: 1500 MG, DAILY
     Route: 048

REACTIONS (3)
  - Intentional self-injury [Recovered/Resolved]
  - Orthostatic hypotension [Recovered/Resolved]
  - Intentional product misuse [Recovered/Resolved]

NARRATIVE: CASE EVENT DATE: 20180529
